FAERS Safety Report 7789393-5 (Version None)
Quarter: 2011Q3

REPORT INFORMATION
  Report Type: 
  Country: None (occurrence: None)
  Receive Date: 20110930
  Receipt Date: 20110927
  Transmission Date: 20111222
  Serious: Yes (Other)
  Sender: FDA-Public Use
  Company Number: FR-ABBOTT-11P-056-0698363-00

PATIENT
  Sex: Female
  Weight: 70 kg

DRUGS (12)
  1. PROPRANOLOL [Concomitant]
     Indication: HYPERTENSION
  2. LERCANIDIPINE [Concomitant]
     Indication: HYPERTENSION
     Dates: end: 20100401
  3. IMURAN [Suspect]
     Indication: CROHN'S DISEASE
     Dates: start: 20090701
  4. PREDNISOLONE [Concomitant]
     Indication: CROHN'S DISEASE
     Dates: end: 20090701
  5. HUMIRA [Suspect]
     Indication: CROHN'S DISEASE
     Route: 058
     Dates: start: 20100101
  6. PREDNISOLONE [Concomitant]
  7. CYPROTERONE [Suspect]
     Indication: HIRSUTISM
     Dates: end: 20100401
  8. IMURAN [Suspect]
     Dates: end: 20100101
  9. HUMIRA [Suspect]
     Route: 058
     Dates: end: 20101201
  10. PREDNISOLONE [Concomitant]
     Dates: start: 20090701, end: 20090801
  11. PREDNISOLONE [Concomitant]
     Dates: start: 20090801
  12. PREDNISOLONE [Concomitant]
     Dates: start: 20110101

REACTIONS (8)
  - FAMILY STRESS [None]
  - AUTOIMMUNE DISORDER [None]
  - HEPATIC STEATOSIS [None]
  - GASTROINTESTINAL DISORDER [None]
  - WEIGHT INCREASED [None]
  - DEPRESSION [None]
  - AUTOIMMUNE HEPATITIS [None]
  - TRANSAMINASES ABNORMAL [None]
